FAERS Safety Report 6844060-7 (Version None)
Quarter: 2010Q3

REPORT INFORMATION
  Report Type: 
  Country: None (occurrence: None)
  Receive Date: 20100714
  Receipt Date: 20100714
  Transmission Date: 20110219
  Serious: Yes (Hospitalization)
  Sender: FDA-Public Use
  Company Number: None

PATIENT
  Age: 56 Year
  Sex: Female
  Weight: 74.8435 kg

DRUGS (4)
  1. AZITHROMYCIN 250MG TEVA [Suspect]
     Indication: BRONCHITIS
     Dosage: 1XDAY FOR 4 DAYS PO
     Route: 048
     Dates: start: 20100706, end: 20100711
  2. AZITHROMYCIN 250MG TEVA [Suspect]
     Indication: PULMONARY CONGESTION
     Dosage: 1XDAY FOR 4 DAYS PO
     Route: 048
     Dates: start: 20100706, end: 20100711
  3. METHYLPREDNISOLONE 4MG TAB [Suspect]
     Indication: BRONCHITIS
     Dosage: 2XTWICE A DAY PO (20 DOSES)
     Route: 048
     Dates: start: 20100709, end: 20100712
  4. METHYLPREDNISOLONE 4MG TAB [Suspect]
     Indication: PULMONARY CONGESTION
     Dosage: 2XTWICE A DAY PO (20 DOSES)
     Route: 048
     Dates: start: 20100709, end: 20100712

REACTIONS (2)
  - ANTICONVULSANT DRUG LEVEL DECREASED [None]
  - CONVULSION [None]
